FAERS Safety Report 8004076-4 (Version None)
Quarter: 2011Q4

REPORT INFORMATION
  Report Type: 
  Country: None (occurrence: None)
  Receive Date: 20111222
  Receipt Date: 20111213
  Transmission Date: 20120403
  Serious: Yes (Hospitalization)
  Sender: FDA-Public Use
  Company Number: FR-ASTRAZENECA-2011SE76139

PATIENT
  Age: 39 Year
  Sex: Male

DRUGS (4)
  1. FUCIDINE CAP [Concomitant]
     Route: 061
     Dates: start: 20100707
  2. NEXIUM [Suspect]
     Route: 048
     Dates: start: 20100707, end: 20100708
  3. SURGAM [Suspect]
     Indication: ERYSIPELAS
     Route: 048
     Dates: start: 20100707, end: 20100708
  4. PYOSTACINE [Suspect]
     Indication: ERYSIPELAS
     Route: 048
     Dates: start: 20110707, end: 20110708

REACTIONS (3)
  - ERYTHEMA [None]
  - RASH VESICULAR [None]
  - RASH MACULAR [None]
